FAERS Safety Report 8668916 (Version 4)
Quarter: 2015Q3

REPORT INFORMATION
  Report Type: Report from Study
  Country: CA (occurrence: CA)
  Receive Date: 20120717
  Receipt Date: 20150821
  Transmission Date: 20151125
  Serious: Yes (Death, Hospitalization)
  Sender: FDA-Public Use
  Company Number: PHHY2012CA060977

PATIENT
  Age: 67 Year
  Sex: Female

DRUGS (3)
  1. CLOZARIL [Suspect]
     Active Substance: CLOZAPINE
     Dosage: 225 OT, QHS
     Route: 048
  2. CLOZARIL [Suspect]
     Active Substance: CLOZAPINE
     Indication: PRODUCT USED FOR UNKNOWN INDICATION
     Route: 048
     Dates: start: 20120319
  3. CLOZARIL [Suspect]
     Active Substance: CLOZAPINE
     Dosage: 225 OT, QHS
     Route: 048
     Dates: end: 20120706

REACTIONS (13)
  - Hyperventilation [Unknown]
  - Pneumonia [Unknown]
  - Disorientation [Unknown]
  - Chronic obstructive pulmonary disease [Unknown]
  - Obesity [Unknown]
  - Hypoventilation [Unknown]
  - Agitation [Unknown]
  - Respiratory distress [Recovering/Resolving]
  - Fall [Unknown]
  - Akathisia [Recovering/Resolving]
  - Small cell lung cancer [Unknown]
  - Sedation [Unknown]
  - Death [Fatal]

NARRATIVE: CASE EVENT DATE: 20150814
